FAERS Safety Report 25914254 (Version 1)
Quarter: 2025Q4

REPORT INFORMATION
  Report Type: Spontaneous
  Country: US (occurrence: US)
  Receive Date: 20251013
  Receipt Date: 20251013
  Transmission Date: 20260118
  Serious: Yes (Other)
  Sender: SANDOZ
  Company Number: US-SANDOZ-SDZ2025US074465

PATIENT
  Age: 5 Decade
  Sex: Female

DRUGS (1)
  1. HYDROXYCHLOROQUINE [Suspect]
     Active Substance: HYDROXYCHLOROQUINE
     Indication: Rheumatoid arthritis
     Dosage: 3.6 MG/KG MORE THAN 10 YEARS
     Route: 065

REACTIONS (7)
  - Sinus tachycardia [Unknown]
  - Ejection fraction decreased [Unknown]
  - Atrioventricular block [Unknown]
  - Toxicity to various agents [Unknown]
  - Ventricular tachycardia [Unknown]
  - Electrocardiogram QT prolonged [Recovered/Resolved]
  - Periorbital haematoma [Unknown]
